FAERS Safety Report 6400870-1 (Version None)
Quarter: 2009Q4

REPORT INFORMATION
  Report Type: 
  Country: None (occurrence: None)
  Receive Date: 20091009
  Receipt Date: 20090929
  Transmission Date: 20100525
  Serious: Yes (Other)
  Sender: FDA-Public Use
  Company Number: 231370J09USA

PATIENT
  Age: 61 Year
  Sex: Female
  Weight: 61 kg

DRUGS (3)
  1. REBIF [Suspect]
     Indication: MULTIPLE SCLEROSIS
     Dosage: 44 MCG, 3 IN 1 WEEKS, SUBCUTANEOUS
     Route: 058
  2. INHALER (ALL OTHER THERAPEUTIC PRODUCTS) [Concomitant]
  3. BACLOFEN [Concomitant]

REACTIONS (2)
  - LUNG NEOPLASM MALIGNANT [None]
  - TYPE 2 DIABETES MELLITUS [None]
